FAERS Safety Report 4705336-2 (Version None)
Quarter: 2005Q2

REPORT INFORMATION
  Report Type: 
  Country: None (occurrence: None)
  Receive Date: 20050629
  Receipt Date: 20050606
  Transmission Date: 20051028
  Serious: Yes (Death)
  Sender: FDA-Public Use
  Company Number: GXKR2005US01182

PATIENT

DRUGS (1)
  1. CEFTRIAXONE [Suspect]

REACTIONS (5)
  - HAEMOGLOBIN DECREASED [None]
  - HAEMOLYSIS [None]
  - HEPATITIS [None]
  - MULTI-ORGAN FAILURE [None]
  - RENAL FAILURE [None]
